FAERS Safety Report 24760714 (Version 2)
Quarter: 2024Q4

REPORT INFORMATION
  Report Type: Spontaneous
  Country: FR (occurrence: FR)
  Receive Date: 20241220
  Receipt Date: 20241226
  Transmission Date: 20250115
  Serious: Yes (Death, Other)
  Sender: PFIZER
  Company Number: FR-PFIZER INC-PV202400163512

PATIENT
  Age: 65 Year
  Sex: Female

DRUGS (1)
  1. ELREXFIO [Suspect]
     Active Substance: ELRANATAMAB-BCMM
     Indication: Plasma cell myeloma
     Dosage: 12 MG
     Dates: start: 20241122, end: 20241125

REACTIONS (3)
  - Septic shock [Fatal]
  - Sepsis [Unknown]
  - Behaviour disorder due to a general medical condition [Unknown]

NARRATIVE: CASE EVENT DATE: 20240101
